FAERS Safety Report 14823372 (Version 1)
Quarter: 2018Q2

REPORT INFORMATION
  Report Type: Spontaneous
  Country: US (occurrence: US)
  Receive Date: 20180427
  Receipt Date: 20180427
  Transmission Date: 20180711
  Serious: No
  Sender: FDA-Public Use
  Company Number: US-GLAXOSMITHKLINE-US2018071932

PATIENT
  Sex: Male

DRUGS (4)
  1. ATROVENT [Concomitant]
     Active Substance: IPRATROPIUM BROMIDE
  2. TRELEGY ELLIPTA [Suspect]
     Active Substance: FLUTICASONE FUROATE\UMECLIDINIUM BROMIDE\VILANTEROL TRIFENATATE
     Indication: ASTHMA
     Dosage: 1 PUFF(S), BID
  3. RHINOCORT [Concomitant]
     Active Substance: BUDESONIDE
  4. BENADRYL AH [Concomitant]

REACTIONS (5)
  - Off label use [Unknown]
  - Inappropriate schedule of drug administration [Unknown]
  - Insomnia [Recovered/Resolved]
  - Product use in unapproved indication [Unknown]
  - Initial insomnia [Recovered/Resolved]
